FAERS Safety Report 16641495 (Version 1)
Quarter: 2019Q3

REPORT INFORMATION
  Report Type: Spontaneous
  Country: BE (occurrence: BE)
  Receive Date: 20190729
  Receipt Date: 20190729
  Transmission Date: 20191004
  Serious: Yes (Life-Threatening, Hospitalization, Other)
  Sender: FDA-Public Use
  Company Number: BE-SUN PHARMACEUTICAL INDUSTRIES LTD-2019R1-201009

PATIENT
  Age: 9 Year
  Sex: Male

DRUGS (1)
  1. METHADONE [Suspect]
     Active Substance: METHADONE HYDROCHLORIDE
     Indication: PRODUCT USED FOR UNKNOWN INDICATION
     Dosage: UNK
     Route: 065

REACTIONS (10)
  - Toxicity to various agents [Unknown]
  - Hyperglycaemia [Unknown]
  - Dysphagia [Unknown]
  - Extrapyramidal disorder [Unknown]
  - Dystonia [Not Recovered/Not Resolved]
  - Intention tremor [Not Recovered/Not Resolved]
  - Parkinsonism [Unknown]
  - Behaviour disorder [Unknown]
  - Locked-in syndrome [Unknown]
  - Pyramidal tract syndrome [Recovered/Resolved]
